FAERS Safety Report 7370738-5 (Version None)
Quarter: 2011Q1

REPORT INFORMATION
  Report Type: 
  Country: None (occurrence: None)
  Receive Date: 20110323
  Receipt Date: 20110314
  Transmission Date: 20110831
  Serious: Yes (Hospitalization)
  Sender: FDA-Public Use
  Company Number: FR-BRISTOL-MYERS SQUIBB COMPANY-15611056

PATIENT
  Age: 71 Year
  Sex: Male

DRUGS (8)
  1. COUMADIN [Suspect]
     Route: 048
     Dates: start: 20101015, end: 20101020
  2. LOVENOX [Suspect]
     Route: 058
     Dates: start: 20101001, end: 20101020
  3. AMLODIPINE BESYLATE [Concomitant]
  4. ELISOR [Concomitant]
  5. CONTRAMAL [Suspect]
     Route: 048
  6. NICOPATCH [Concomitant]
     Route: 062
  7. ACETAMINOPHEN [Suspect]
     Route: 048
  8. CORDARONE [Suspect]
     Route: 048

REACTIONS (8)
  - INFLAMMATION [None]
  - EPISTAXIS [None]
  - ACIDOSIS [None]
  - LUNG DISORDER [None]
  - PYREXIA [None]
  - DEHYDRATION [None]
  - GENERAL PHYSICAL HEALTH DETERIORATION [None]
  - RENAL FAILURE [None]
